FAERS Safety Report 7322025-9 (Version None)
Quarter: 2011Q1

REPORT INFORMATION
  Report Type: 
  Country: None (occurrence: None)
  Receive Date: 20110216
  Receipt Date: 20110207
  Transmission Date: 20110831
  Serious: Yes (Hospitalization, Other)
  Sender: FDA-Public Use
  Company Number: 2009AC000113

PATIENT
  Sex: Male

DRUGS (56)
  1. TERAZOSIN [Concomitant]
  2. ATROVENT [Concomitant]
  3. PREDISONE [Concomitant]
  4. SPIRIVA [Concomitant]
  5. CPAP [Concomitant]
  6. CODEINE [Concomitant]
  7. LEVAQUIN [Concomitant]
  8. ASPIRIN [Concomitant]
  9. LISINOPRIL [Concomitant]
  10. FELODIPINE [Concomitant]
  11. LORAZEPAM [Concomitant]
  12. LASIX [Concomitant]
  13. NEO-SYNEPHRINOL [Concomitant]
  14. LORAZEPAN [Concomitant]
  15. COLACE [Concomitant]
  16. SOLU-MEDROL [Concomitant]
  17. TEROZOCIN [Concomitant]
  18. RED YEAST RICE [Concomitant]
  19. SINUS IRRIGATION [Concomitant]
  20. ATROVENT [Concomitant]
  21. LOVASTATIN [Concomitant]
  22. MAGNESIUM HYDROXIDE [Concomitant]
  23. AMOXIL [Concomitant]
  24. FINASTERIDE [Concomitant]
  25. PROTON PUMP INHIBITOR [Concomitant]
  26. NITROGLYCERIN [Concomitant]
  27. ALBUTEROL [Concomitant]
  28. FLUNISOLIDE NASAL [Concomitant]
  29. ADVAIR DISKUS 100/50 [Concomitant]
  30. CLARINEX [Concomitant]
  31. TEMAZEPAM [Concomitant]
  32. LOVENOX [Concomitant]
  33. RUSSIONEX [Concomitant]
  34. DIOVAN [Concomitant]
  35. SAW PALMETTO [Concomitant]
  36. PROPOXYPHENE [Concomitant]
  37. METRONIDAZOLE [Concomitant]
  38. METOPROLOL [Concomitant]
  39. HERBAL MEDICINES [Concomitant]
  40. GLYBURIDE [Concomitant]
  41. VENTOLIN [Concomitant]
  42. RESTORIL [Concomitant]
  43. AMBIEN [Concomitant]
  44. ALLERGY INJECTION [Concomitant]
  45. SONATA [Concomitant]
  46. LACTULOSE [Concomitant]
  47. DIGOXIN [Suspect]
     Dosage: (PO) (0.250 MG; QD; PO)
     Route: 048
     Dates: start: 19970101
  48. DIGOXIN [Suspect]
     Dosage: (PO) (0.250 MG; QD; PO)
     Route: 048
     Dates: start: 20000501, end: 20080729
  49. ARTHROENZYME [Concomitant]
  50. AVANDIA [Concomitant]
  51. LIQUID SILVER [Concomitant]
  52. OCEAN SPRAY [Concomitant]
  53. ASTELIN [Concomitant]
  54. LUNESTA [Concomitant]
  55. ELAVIL [Concomitant]
  56. ATIVAN [Concomitant]

REACTIONS (73)
  - DELIRIUM [None]
  - NASAL CONGESTION [None]
  - RHINITIS ALLERGIC [None]
  - MENINGIOMA BENIGN [None]
  - LEFT ATRIAL DILATATION [None]
  - CHOLELITHIASIS [None]
  - ACUTE RESPIRATORY FAILURE [None]
  - LEFT VENTRICULAR DYSFUNCTION [None]
  - VENTRICULAR TACHYCARDIA [None]
  - ECONOMIC PROBLEM [None]
  - CHRONIC OBSTRUCTIVE PULMONARY DISEASE [None]
  - CARDIAC FAILURE CONGESTIVE [None]
  - LETHARGY [None]
  - MENTAL STATUS CHANGES [None]
  - ANXIETY [None]
  - BIPOLAR DISORDER [None]
  - ISCHAEMIA [None]
  - INTRAOCULAR LENS IMPLANT [None]
  - PULMONARY OEDEMA [None]
  - TREATMENT NONCOMPLIANCE [None]
  - PUNCTATE KERATITIS [None]
  - BENIGN PROSTATIC HYPERPLASIA [None]
  - PNEUMONIA [None]
  - UNRESPONSIVE TO STIMULI [None]
  - PRODUCTIVE COUGH [None]
  - PYREXIA [None]
  - LEUKOCYTOSIS [None]
  - MACULAR DEGENERATION [None]
  - RENAL FAILURE ACUTE [None]
  - TACHYPNOEA [None]
  - DYSPHAGIA [None]
  - ASPIRATION [None]
  - MUSCULAR WEAKNESS [None]
  - HAEMOGLOBIN DECREASED [None]
  - CAROTID ARTERY STENOSIS [None]
  - INJURY [None]
  - HYPERTENSION [None]
  - URINARY TRACT INFECTION [None]
  - SINUSITIS FUNGAL [None]
  - LIVER DISORDER [None]
  - HEPATIC VEIN THROMBOSIS [None]
  - CONFUSIONAL STATE [None]
  - PERIPHERAL SENSORY NEUROPATHY [None]
  - WHEEZING [None]
  - CORONARY ARTERY DISEASE [None]
  - SEPSIS [None]
  - RESPIRATORY FAILURE [None]
  - ANEURYSM [None]
  - DYSPNOEA [None]
  - MITRAL VALVE INCOMPETENCE [None]
  - ATRIOVENTRICULAR BLOCK FIRST DEGREE [None]
  - CHEST PAIN [None]
  - NAUSEA [None]
  - BRAIN NATRIURETIC PEPTIDE INCREASED [None]
  - ANXIETY DISORDER [None]
  - HYPOKINESIA [None]
  - PANCREATITIS [None]
  - HYPERGLYCAEMIA [None]
  - NASAL MUCOSAL DISORDER [None]
  - DILATATION VENTRICULAR [None]
  - CORONARY ARTERY STENOSIS [None]
  - OEDEMA PERIPHERAL [None]
  - DIABETES MELLITUS [None]
  - INSOMNIA [None]
  - SLEEP APNOEA SYNDROME [None]
  - TRICUSPID VALVE INCOMPETENCE [None]
  - HYPOAESTHESIA [None]
  - PLEURAL EFFUSION [None]
  - HAEMATOCRIT DECREASED [None]
  - POLYP [None]
  - PULMONARY HYPERTENSION [None]
  - DIABETIC RETINOPATHY [None]
  - CANDIDIASIS [None]
